FAERS Safety Report 9406855 (Version 1)
Quarter: 2013Q3

REPORT INFORMATION
  Report Type: Spontaneous
  Country: NO (occurrence: NO)
  Receive Date: 20130718
  Receipt Date: 20130718
  Transmission Date: 20140515
  Serious: Yes (Hospitalization, Disabling, Other)
  Sender: FDA-Public Use
  Company Number: PHHY2013NO075131

PATIENT
  Sex: Female

DRUGS (8)
  1. VOLTAREN [Suspect]
     Indication: EPICONDYLITIS
     Dosage: 50 MG, (2X20 UNITS TWO TIMES)
     Dates: start: 20110128, end: 20110203
  2. AVAMYS [Concomitant]
     Dosage: 27.5 UG, (1-2 INHALATIONS IN BOTH NOSTRILS A DAY)
  3. OPATANOL [Concomitant]
     Indication: HYPERSENSITIVITY
     Dosage: (1 MG/ML, 1-2 DROPS IN BOTH EYES MORNING AND NIGHT)
  4. SERETIDE DISCUS [Concomitant]
     Dosage: (50/250 UG, 1 INHALATION MORNING AND NIGHT)
  5. SOMAC [Concomitant]
     Dosage: 40 MG, QD
  6. SOMAC [Concomitant]
     Dosage: 40 MG, (EVERY OTHER DAY TO THE BOX IS EMPTY)
  7. ZYRTEC [Concomitant]
     Indication: HYPERSENSITIVITY
     Dosage: 10 MG, QD
  8. IBUX [Concomitant]
     Indication: BACK PAIN
     Dosage: 600 MG, (30 UNITS, 1X3 )
     Dates: start: 20070628

REACTIONS (14)
  - Gastric antral vascular ectasia [Not Recovered/Not Resolved]
  - Nausea [Unknown]
  - Dyspepsia [Unknown]
  - Haematemesis [Unknown]
  - Abdominal pain upper [Unknown]
  - Abdominal discomfort [Unknown]
  - Gastrointestinal haemorrhage [Not Recovered/Not Resolved]
  - Atelectasis [Unknown]
  - Quality of life decreased [Unknown]
  - Listless [Unknown]
  - Fatigue [Unknown]
  - Palpitations [Unknown]
  - Somnolence [Unknown]
  - Blood pressure increased [Unknown]
